FAERS Safety Report 14863180 (Version 1)
Quarter: 2018Q2

REPORT INFORMATION
  Report Type: Spontaneous
  Country: US (occurrence: US)
  Receive Date: 20180508
  Receipt Date: 20180508
  Transmission Date: 20180711
  Serious: No
  Sender: FDA-Public Use
  Company Number: US-ALKERMES INC.-ALK-2017-002030

PATIENT
  Age: 58 Year
  Sex: Male
  Weight: 99.77 kg

DRUGS (5)
  1. VIVITROL [Suspect]
     Active Substance: NALTREXONE
     Indication: ALCOHOLISM
  2. AMOXIL [Concomitant]
     Active Substance: AMOXICILLIN
     Indication: GASTROINTESTINAL DISORDER
  3. LEXAPRO [Concomitant]
     Active Substance: ESCITALOPRAM OXALATE
     Indication: DEPRESSION
  4. CIALIS [Concomitant]
     Active Substance: TADALAFIL
     Indication: PRODUCT USED FOR UNKNOWN INDICATION
  5. VIVITROL [Suspect]
     Active Substance: NALTREXONE
     Indication: DRUG DEPENDENCE
     Dosage: 380 MG, QMO
     Route: 030
     Dates: start: 20170509

REACTIONS (14)
  - Food intolerance [Not Recovered/Not Resolved]
  - Weight decreased [Unknown]
  - Pancreatic enzymes increased [Unknown]
  - Injection site warmth [Unknown]
  - Thirst decreased [Not Recovered/Not Resolved]
  - Injection site pain [Unknown]
  - Nephrolithiasis [Unknown]
  - Eating disorder [Not Recovered/Not Resolved]
  - Dysuria [Unknown]
  - Injection site mass [Unknown]
  - Prostatomegaly [Unknown]
  - Injection site reaction [Unknown]
  - Diarrhoea [Not Recovered/Not Resolved]
  - Abdominal discomfort [Not Recovered/Not Resolved]

NARRATIVE: CASE EVENT DATE: 201705
